FAERS Safety Report 8786869 (Version 1)
Quarter: 2012Q4

REPORT INFORMATION
  Report Type: 
  Country: TW (occurrence: TW)
  Receive Date: 20120914
  Receipt Date: 20120914
  Transmission Date: 20130627
  Serious: Yes (Other)
  Sender: FDA-Public Use
  Company Number: TW-PAR PHARMACEUTICAL, INC-2012SCPR004617

PATIENT

DRUGS (1)
  1. IBUPROFEN [Suspect]
     Indication: OROPHARYNGEAL PAIN
     Dosage: UNK, Unknown
     Route: 065

REACTIONS (1)
  - Drug eruption [Unknown]
